FAERS Safety Report 19962637 (Version 6)
Quarter: 2022Q4

REPORT INFORMATION
  Report Type: Report from Study
  Country: JP (occurrence: JP)
  Receive Date: 20211018
  Receipt Date: 20221005
  Transmission Date: 20230112
  Serious: Yes (Death, Life-Threatening)
  Sender: FDA-Public Use
  Company Number: JP-ABBVIE-21K-087-4123455-00

PATIENT
  Age: 80 Year
  Sex: Male
  Weight: 43 kg

DRUGS (15)
  1. VENCLEXTA [Suspect]
     Active Substance: VENETOCLAX
     Indication: Acute myeloid leukaemia
     Dosage: 50 MILLIGRAM
     Route: 048
     Dates: start: 20210423, end: 20210423
  2. VENCLEXTA [Suspect]
     Active Substance: VENETOCLAX
     Indication: Acute myeloid leukaemia
     Dosage: 100 MILLIGRAM
     Route: 048
     Dates: start: 20210424, end: 20210424
  3. VENCLEXTA [Suspect]
     Active Substance: VENETOCLAX
     Indication: Acute myeloid leukaemia
     Dosage: 200 MILLIGRAM
     Route: 048
     Dates: start: 20210425, end: 20210512
  4. AZACITIDINE [Suspect]
     Active Substance: AZACITIDINE
     Indication: Acute myeloid leukaemia
     Route: 050
     Dates: start: 20210423, end: 20210429
  5. FLUCONAZOLE [Concomitant]
     Active Substance: FLUCONAZOLE
     Indication: Infection prophylaxis
     Route: 048
     Dates: start: 20210428, end: 20210504
  6. MINOCYCLINE HYDROCHLORIDE [Concomitant]
     Active Substance: MINOCYCLINE HYDROCHLORIDE
     Indication: Infection prophylaxis
     Route: 050
     Dates: start: 20210511
  7. MICAFUNGIN SODIUM [Concomitant]
     Active Substance: MICAFUNGIN SODIUM
     Indication: Sepsis
  8. DORIPENEM [Concomitant]
     Active Substance: DORIPENEM
     Indication: Infection prophylaxis
     Route: 050
     Dates: start: 20210511
  9. ACETAMINOPHEN [Concomitant]
     Active Substance: ACETAMINOPHEN
     Indication: Infection prophylaxis
     Route: 050
     Dates: start: 20210510
  10. VANCOMYCIN HYDROCHLORIDE [Concomitant]
     Active Substance: VANCOMYCIN HYDROCHLORIDE
     Indication: Febrile neutropenia
  11. PIPERACILLIN SODIUM\TAZOBACTAM SODIUM [Concomitant]
     Active Substance: PIPERACILLIN SODIUM\TAZOBACTAM SODIUM
     Indication: Febrile neutropenia
  12. CEFEPIME HYDROCHLORIDE [Concomitant]
     Active Substance: CEFEPIME HYDROCHLORIDE
     Indication: Infection prophylaxis
  13. DORIPENEM MONOHYDRATE [Concomitant]
     Active Substance: DORIPENEM MONOHYDRATE
     Indication: Infection prophylaxis
     Dates: start: 20210511
  14. MEROPENEM [Concomitant]
     Active Substance: MEROPENEM
     Indication: Infection prophylaxis
     Dates: start: 20210505, end: 20210511
  15. CEFEPIME [Concomitant]
     Active Substance: CEFEPIME HYDROCHLORIDE
     Indication: Febrile neutropenia

REACTIONS (2)
  - Sepsis [Fatal]
  - Febrile neutropenia [Not Recovered/Not Resolved]

NARRATIVE: CASE EVENT DATE: 20210425
